FAERS Safety Report 18898544 (Version 1)
Quarter: 2021Q1

REPORT INFORMATION
  Report Type: Spontaneous
  Country: US (occurrence: US)
  Receive Date: 20210214
  Receipt Date: 20210214
  Transmission Date: 20210420
  Serious: No
  Sender: FDA-Public Use
  Company Number: None

PATIENT
  Age: 24 Year
  Sex: Female
  Weight: 67.5 kg

DRUGS (4)
  1. HAIR SKIN AND NAILS DAILY MULTIVITAMIN WITH COLLAGEN [Concomitant]
  2. DEXTROAMPHET SACCHARAT, AMPHET ASPARTATE, DEXTROAMPHET SULFATE AND AMPHET SULFAT [Suspect]
     Active Substance: AMPHETAMINE ASPARTATE\AMPHETAMINE SULFATE\DEXTROAMPHETAMINE SACCHARATE\DEXTROAMPHETAMINE SULFATE
     Indication: ATTENTION DEFICIT HYPERACTIVITY DISORDER
     Dosage: ?          QUANTITY:1 CAPSULE(S);?
     Route: 048
     Dates: start: 20210204, end: 20210214
  3. TRAZODONE [Concomitant]
     Active Substance: TRAZODONE HYDROCHLORIDE
  4. GENERIC ABILIFY [Concomitant]
     Active Substance: ARIPIPRAZOLE

REACTIONS (10)
  - Drug ineffective [None]
  - Retching [None]
  - Hypophagia [None]
  - Product taste abnormal [None]
  - Product odour abnormal [None]
  - Product substitution issue [None]
  - Feeling abnormal [None]
  - Palpitations [None]
  - Therapeutic product effect incomplete [None]
  - Insomnia [None]
